FAERS Safety Report 18791706 (Version 1)
Quarter: 2021Q1

REPORT INFORMATION
  Report Type: Spontaneous
  Country: US (occurrence: US)
  Receive Date: 20210126
  Receipt Date: 20210126
  Transmission Date: 20210419
  Serious: No
  Sender: FDA-Public Use
  Company Number: US-PERRIGO-20US012267

PATIENT
  Sex: Female

DRUGS (1)
  1. IBUPROFEN AND DIPHENHYDRAMINE CITRATE [Suspect]
     Active Substance: DIPHENHYDRAMINE CITRATE\IBUPROFEN
     Indication: INSOMNIA
     Dosage: 2 TABLETS, SINGLE
     Route: 048
     Dates: start: 20200818, end: 20200818

REACTIONS (4)
  - Nausea [Unknown]
  - Product administration error [Recovered/Resolved]
  - Gait disturbance [Unknown]
  - Vomiting [Unknown]

NARRATIVE: CASE EVENT DATE: 20200818
